FAERS Safety Report 15820631 (Version 1)
Quarter: 2018Q4

REPORT INFORMATION
  Report Type: Spontaneous
  Country: US (occurrence: US)
  Receive Date: 20181217
  Receipt Date: 20181217
  Transmission Date: 20190205
  Serious: Yes (Hospitalization)
  Sender: FDA-Public Use
  Company Number: None

PATIENT
  Age: 75 Year
  Sex: Male
  Weight: 79.3 kg

DRUGS (3)
  1. LENALIDOMIDE [Suspect]
     Active Substance: LENALIDOMIDE
     Dates: end: 20181114
  2. DEXAMETHASONE. [Suspect]
     Active Substance: DEXAMETHASONE
     Dates: end: 20181109
  3. VELCADE [Suspect]
     Active Substance: BORTEZOMIB
     Dates: end: 20181108

REACTIONS (10)
  - Lung consolidation [None]
  - Pulmonary oedema [None]
  - Lung infection [None]
  - Left ventricular failure [None]
  - Right ventricular systolic pressure increased [None]
  - Aspiration [None]
  - Degenerative aortic valve disease [None]
  - Aortic valve incompetence [None]
  - Pulmonary mass [None]
  - Myocardial ischaemia [None]

NARRATIVE: CASE EVENT DATE: 20181126
